FAERS Safety Report 14274250 (Version 1)
Quarter: 2017Q4

REPORT INFORMATION
  Report Type: Spontaneous
  Country: JP (occurrence: JP)
  Receive Date: 20171211
  Receipt Date: 20171211
  Transmission Date: 20180321
  Serious: Yes (Other)
  Sender: FDA-Public Use
  Company Number: JP-OTSUKA-2016_028875

PATIENT
  Age: 78 Year
  Sex: Male

DRUGS (5)
  1. DEPAKENE [Concomitant]
     Active Substance: VALPROIC ACID
     Indication: PRODUCT USED FOR UNKNOWN INDICATION
     Dosage: 800 MG, QD
     Route: 048
     Dates: start: 20161202
  2. ROZEREM [Concomitant]
     Active Substance: RAMELTEON
     Indication: PRODUCT USED FOR UNKNOWN INDICATION
     Dosage: 8 MG, QD
     Route: 048
     Dates: start: 20161129
  3. ABILIFY [Suspect]
     Active Substance: ARIPIPRAZOLE
     Indication: MANIA
     Dosage: 30 MG, QD
     Route: 048
     Dates: start: 20161130
  4. ABILIFY [Suspect]
     Active Substance: ARIPIPRAZOLE
     Indication: BIPOLAR DISORDER
     Dosage: 24 MG, QD
     Route: 048
     Dates: start: 20161125, end: 20161129
  5. DEPAKENE [Concomitant]
     Active Substance: VALPROIC ACID
     Dosage: 400 MG, QD
     Route: 048
     Dates: start: 20161125, end: 20161201

REACTIONS (1)
  - Hyponatraemia [Recovered/Resolved]

NARRATIVE: CASE EVENT DATE: 20161205
